FAERS Safety Report 4884687-5 (Version None)
Quarter: 2006Q1

REPORT INFORMATION
  Report Type: 
  Country: None (occurrence: None)
  Receive Date: 20060117
  Receipt Date: 20060104
  Transmission Date: 20060701
  Serious: Yes (Other)
  Sender: FDA-Public Use
  Company Number: 2005162870

PATIENT
  Sex: Female
  Weight: 72.5755 kg

DRUGS (4)
  1. DILANTIN [Suspect]
     Indication: CONVULSION
     Dates: start: 19770101, end: 19850101
  2. CELEBREX [Suspect]
     Indication: ARTHRITIS
     Dates: start: 19850101
  3. ANTIINFECTIVES (ANTIINFECTIVES) [Suspect]
     Indication: CYSTITIS
  4. ALL OTHER THERAPEUTIC PRODUCTS (ALL OTHER THERAPEUTIC PRODUCTS) [Concomitant]

REACTIONS (7)
  - CONVULSION [None]
  - CYSTITIS [None]
  - DRUG INEFFECTIVE [None]
  - DRUG INTERACTION [None]
  - DRUG RESISTANCE [None]
  - RASH [None]
  - URTICARIA [None]
